FAERS Safety Report 9995408 (Version 1)
Quarter: 2014Q1

REPORT INFORMATION
  Report Type: Spontaneous
  Country: US (occurrence: None)
  Receive Date: 20140218
  Receipt Date: 20140218
  Transmission Date: 20141002
  Serious: Yes (Other)
  Sender: FDA-Public Use
  Company Number: 1000050474

PATIENT
  Age: 70 Year
  Sex: Female

DRUGS (3)
  1. VIIBRYD [Suspect]
     Indication: DEPRESSION
     Route: 048
     Dates: start: 20131016
  2. BUPROPION (BUPROPION) (BUPROPION) [Concomitant]
  3. HORMONE REPLACEMENT THRAPY [Concomitant]

REACTIONS (1)
  - Insomnia [None]
